FAERS Safety Report 14819885 (Version 1)
Quarter: 2018Q2

REPORT INFORMATION
  Report Type: Spontaneous
  Country: US (occurrence: US)
  Receive Date: 20180427
  Receipt Date: 20180427
  Transmission Date: 20180711
  Serious: No
  Sender: FDA-Public Use
  Company Number: US-JNJFOC-20180335802

PATIENT
  Sex: Male
  Weight: 78.93 kg

DRUGS (2)
  1. FENTANYL. [Suspect]
     Active Substance: FENTANYL
     Indication: HEAD INJURY
     Route: 062
  2. FENTANYL. [Suspect]
     Active Substance: FENTANYL
     Indication: HEAD INJURY
     Route: 062

REACTIONS (3)
  - Drug ineffective [Unknown]
  - General physical condition abnormal [Unknown]
  - Malaise [Unknown]
